FAERS Safety Report 20594754 (Version 1)
Quarter: 2022Q1

REPORT INFORMATION
  Report Type: Spontaneous
  Country: SA (occurrence: SA)
  Receive Date: 20220315
  Receipt Date: 20220315
  Transmission Date: 20220423
  Serious: Yes (Hospitalization, Other)
  Sender: FDA-Public Use
  Company Number: SA-PRA-001173

PATIENT
  Age: 30 Year
  Sex: Female

DRUGS (3)
  1. METHYLPREDNISOLONE [Suspect]
     Active Substance: METHYLPREDNISOLONE
     Indication: Multiple sclerosis relapse
     Route: 042
  2. METHYLPREDNISOLONE [Suspect]
     Active Substance: METHYLPREDNISOLONE
     Indication: Multiple sclerosis relapse
     Dosage: 1 G DILUTED IN 250 ML OF 0.9% NORMAL SALINE OVER FOUR HOURS
     Route: 042
  3. METHYLPREDNISOLONE [Suspect]
     Active Substance: METHYLPREDNISOLONE
     Indication: Multiple sclerosis relapse
     Route: 042

REACTIONS (4)
  - Bradycardia [Recovered/Resolved]
  - Dizziness [Recovered/Resolved]
  - Malaise [Recovered/Resolved]
  - Chest discomfort [Recovered/Resolved]
